FAERS Safety Report 10935553 (Version 1)
Quarter: 2015Q1

REPORT INFORMATION
  Report Type: Spontaneous
  Country: US (occurrence: US)
  Receive Date: 20150320
  Receipt Date: 20150320
  Transmission Date: 20150721
  Serious: No
  Sender: FDA-Public Use
  Company Number: US-GLAXOSMITHKLINE-US2015GSK037119

PATIENT
  Sex: Female
  Weight: 77.98 kg

DRUGS (1)
  1. VOTRIENT [Suspect]
     Active Substance: PAZOPANIB HYDROCHLORIDE
     Indication: LEIOMYOSARCOMA
     Dosage: 800 MG, QD
     Dates: start: 20150221, end: 20150316

REACTIONS (2)
  - Haemoptysis [Unknown]
  - Vision blurred [Unknown]
